FAERS Safety Report 4408292-X (Version None)
Quarter: 2004Q3

REPORT INFORMATION
  Report Type: 
  Country: None (occurrence: None)
  Receive Date: 20040722
  Receipt Date: 20040713
  Transmission Date: 20050211
  Serious: No
  Sender: FDA-Public Use
  Company Number: 04H-056026695600

PATIENT
  Sex: 0

DRUGS (6)
  1. LEUCOVORIN CALCIUM [Suspect]
     Indication: CHEMOTHERAPY
     Dosage: EVERY 2 WEEKS, IV
     Route: 042
  2. FLUOROURACIL [Suspect]
     Indication: CHEMOTHERAPY
     Dosage: EVERY 2 WEEKS,INTRAVENOUS
     Route: 042
  3. CISPLATIN [Suspect]
     Indication: CHEMOTHERAPY
     Dosage: 50 MG/M2, ON DAY 2 EVERY 2 WEEKS, INTRAVENOUS
     Route: 042
  4. 5TH3 ANTAGONIST [Concomitant]
  5. PREDNISOLONE [Concomitant]
  6. IV FLUIDS [Concomitant]

REACTIONS (1)
  - FEBRILE NEUTROPENIA [None]
